FAERS Safety Report 7005117-3 (Version None)
Quarter: 2010Q3

REPORT INFORMATION
  Report Type: 
  Country: None (occurrence: None)
  Receive Date: 20100921
  Receipt Date: 20100913
  Transmission Date: 20110219
  Serious: Yes (Death, Other)
  Sender: FDA-Public Use
  Company Number: PHHY2010BE61396

PATIENT
  Age: 66 Year
  Sex: Male

DRUGS (3)
  1. METOPROLOL [Suspect]
     Indication: HYPERTENSION
  2. GADODIAMIDE [Suspect]
     Dosage: 0.1 MMOL/KG
  3. EPOETIN ALFA [Concomitant]

REACTIONS (12)
  - BLISTER [None]
  - COMPLICATIONS OF TRANSPLANTED KIDNEY [None]
  - JOINT CONTRACTURE [None]
  - MOBILITY DECREASED [None]
  - NEPHROGENIC SYSTEMIC FIBROSIS [None]
  - OEDEMA PERIPHERAL [None]
  - PAIN [None]
  - PHYSICAL DISABILITY [None]
  - PRURITUS [None]
  - SKIN DISORDER [None]
  - SKIN HYPERTROPHY [None]
  - SKIN TIGHTNESS [None]
